FAERS Safety Report 8564350-X (Version None)
Quarter: 2012Q3

REPORT INFORMATION
  Report Type: 
  Country: None (occurrence: None)
  Receive Date: 20120803
  Receipt Date: 20120727
  Transmission Date: 20120928
  Serious: Yes (Hospitalization)
  Sender: FDA-Public Use
  Company Number: US-JNJFOC-20120714311

PATIENT
  Sex: Female

DRUGS (4)
  1. NUCYNTA ER [Suspect]
     Indication: PAIN
     Route: 048
     Dates: start: 20120701
  2. UNKNOWN MEDICATION [Suspect]
     Indication: PAIN
     Route: 048
     Dates: end: 20120701
  3. ZOLOFT [Concomitant]
     Indication: MAJOR DEPRESSION
     Route: 048
  4. NUCYNTA ER [Suspect]
     Indication: PAIN
     Dosage: EVERY 4-6 HOURS AS NEEDED
     Route: 048

REACTIONS (2)
  - DRUG EFFECT DECREASED [None]
  - CONSTIPATION [None]
